FAERS Safety Report 4376817-9 (Version None)
Quarter: 2004Q2

REPORT INFORMATION
  Report Type: 
  Country: None (occurrence: None)
  Receive Date: 20040608
  Receipt Date: 20040526
  Transmission Date: 20050107
  Serious: Yes (Hospitalization)
  Sender: FDA-Public Use
  Company Number: 2004215827GB

PATIENT
  Age: 40 Year
  Sex: Male

DRUGS (1)
  1. ARTHROTEC [Suspect]
     Indication: ARTHRITIS
     Dosage: 1 DF, QD, ORAL
     Route: 048
     Dates: start: 20040101, end: 20040427

REACTIONS (5)
  - BLOOD UREA DECREASED [None]
  - DYSPEPSIA [None]
  - HAEMATEMESIS [None]
  - HIATUS HERNIA [None]
  - OESOPHAGITIS [None]
